FAERS Safety Report 5146741-2 (Version None)
Quarter: 2006Q4

REPORT INFORMATION
  Report Type: 
  Country: None (occurrence: None)
  Receive Date: 20061109
  Receipt Date: 20060911
  Transmission Date: 20070319
  Serious: Yes (Disabling)
  Sender: FDA-Public Use
  Company Number: JP-AVENTIS-200612816JP

PATIENT
  Age: 76 Year
  Sex: Female
  Weight: 46 kg

DRUGS (3)
  1. TAXOTERE [Suspect]
     Indication: NEOPLASM
     Route: 041
     Dates: start: 20060829, end: 20060829
  2. FLUOROURACIL [Suspect]
     Indication: NEOPLASM
     Route: 042
     Dates: start: 20060828, end: 20060901
  3. RANDA [Suspect]
     Indication: NEOPLASM
     Route: 042
     Dates: start: 20060829, end: 20060829

REACTIONS (4)
  - BLINDNESS UNILATERAL [None]
  - CORNEAL OEDEMA [None]
  - ENDOPHTHALMITIS [None]
  - EYE PAIN [None]
